FAERS Safety Report 26001509 (Version 3)
Quarter: 2025Q4

REPORT INFORMATION
  Report Type: Spontaneous
  Country: US (occurrence: US)
  Receive Date: 20251105
  Receipt Date: 20251121
  Transmission Date: 20260118
  Serious: Yes (Hospitalization, Other)
  Sender: ELI LILLY AND COMPANY
  Company Number: US-ELI_LILLY_AND_COMPANY-US202511000238

PATIENT
  Age: 56 Year
  Sex: Male
  Weight: 79.7 kg

DRUGS (17)
  1. ADCIRCA [Suspect]
     Active Substance: TADALAFIL
     Indication: Pulmonary hypertension
     Dosage: 2 TABLETS, DAILY
     Route: 048
  2. REMODULIN [Suspect]
     Active Substance: TREPROSTINIL
     Indication: Pulmonary hypertension
     Dosage: 0.090 UG/KG, OTHER (CONTINUOUS)
     Route: 042
     Dates: start: 202104
  3. REMODULIN [Suspect]
     Active Substance: TREPROSTINIL
     Dosage: 0.007173 UG/KG, OTHER (CONTINUOUS)
     Route: 042
  4. REMODULIN [Suspect]
     Active Substance: TREPROSTINIL
     Dosage: UNK UG/KG, UNKNOWN
     Route: 042
  5. LETAIRIS [Suspect]
     Active Substance: AMBRISENTAN
     Indication: Pulmonary hypertension
     Dosage: 10 MG, DAILY
     Route: 048
  6. FAMOTIDINE [Suspect]
     Active Substance: FAMOTIDINE
     Indication: Gastritis
     Dosage: 20 MG, UNKNOWN
     Route: 042
     Dates: start: 20250320
  7. PROTONIX [Suspect]
     Active Substance: PANTOPRAZOLE SODIUM
     Indication: Gastritis
     Dosage: 40 MG, UNKNOWN
     Route: 042
     Dates: start: 20250320
  8. DUPIXENT [Suspect]
     Active Substance: DUPILUMAB
     Indication: Product used for unknown indication
     Dosage: UNK UNK, UNKNOWN
     Route: 065
  9. OLOPATADINE HYDROCHLORIDE [Suspect]
     Active Substance: OLOPATADINE HYDROCHLORIDE
     Indication: Product used for unknown indication
     Dosage: UNK UNK, UNKNOWN
     Route: 045
  10. XHANCE [Suspect]
     Active Substance: FLUTICASONE PROPIONATE
     Indication: Product used for unknown indication
     Dosage: UNK UNK, UNKNOWN
     Route: 045
  11. CIPRO [Suspect]
     Active Substance: CIPROFLOXACIN HYDROCHLORIDE
     Indication: Gastritis
     Dosage: 500 MG, BID
     Route: 048
     Dates: start: 20250311
  12. CIPRO [Suspect]
     Active Substance: CIPROFLOXACIN HYDROCHLORIDE
     Indication: Diverticulitis
  13. TRELEGY ELLIPTA [Concomitant]
     Active Substance: FLUTICASONE FUROATE\UMECLIDINIUM BROMIDE\VILANTEROL TRIFENATATE
     Indication: Nasal polyps
     Dosage: INHALE 1 INHALATION DAILY
     Route: 055
  14. LASIX [Concomitant]
     Active Substance: FUROSEMIDE
     Indication: Product used for unknown indication
     Dosage: 20 MG, EACH MORNING
     Route: 048
  15. FERROUS SULFATE [Concomitant]
     Active Substance: FERROUS SULFATE
     Indication: Product used for unknown indication
     Dosage: 325 MG (ELEMENTAL DOSE 65 MG), DAILY WITH BREAKFAST
     Route: 048
  16. PRILOSEC OTC [Concomitant]
     Active Substance: OMEPRAZOLE MAGNESIUM
     Indication: Product used for unknown indication
     Dosage: UNK UNK, DAILY
     Route: 065
  17. SERALUTINIB [Concomitant]
     Active Substance: SERALUTINIB
     Indication: Product used for unknown indication
     Dosage: UNK
     Dates: start: 202503

REACTIONS (32)
  - Pneumonia aspiration [Unknown]
  - Corynebacterium sepsis [Unknown]
  - Anaphylactic reaction [Recovered/Resolved]
  - Tachypnoea [Recovered/Resolved]
  - Chills [Recovered/Resolved]
  - Erythema [Recovered/Resolved]
  - Pyrexia [Recovered/Resolved]
  - Hypoxia [Unknown]
  - Heart failure with preserved ejection fraction [Unknown]
  - Tricuspid valve thickening [Unknown]
  - Tricuspid valve incompetence [Unknown]
  - Pulmonary valve incompetence [Unknown]
  - Mitral valve incompetence [Unknown]
  - Mitral valve thickening [Unknown]
  - Rectal neoplasm [Unknown]
  - Neoplasm [Unknown]
  - Polyp [Unknown]
  - Aortic valve thickening [Unknown]
  - Aortic valve calcification [Unknown]
  - Gastritis [Recovering/Resolving]
  - Tachycardia [Recovered/Resolved]
  - Hyperhidrosis [Recovered/Resolved]
  - Nausea [Recovered/Resolved]
  - Hypotension [Recovered/Resolved]
  - Mitral valve calcification [Unknown]
  - Pulmonary arterial pressure abnormal [Unknown]
  - Hyperlactacidaemia [Unknown]
  - Pulmonary mass [Unknown]
  - Diarrhoea [Unknown]
  - Rhinorrhoea [Unknown]
  - Chest discomfort [Not Recovered/Not Resolved]
  - Nasopharyngitis [Recovered/Resolved]

NARRATIVE: CASE EVENT DATE: 20250101
